FAERS Safety Report 6223618-2 (Version None)
Quarter: 2009Q2

REPORT INFORMATION
  Report Type: 
  Country: None (occurrence: None)
  Receive Date: 20090611
  Receipt Date: 20090417
  Transmission Date: 20091009
  Serious: No
  Sender: FDA-Public Use
  Company Number: US-ABBOTT-07P-163-0374926-00

PATIENT
  Sex: Female
  Weight: 64.468 kg

DRUGS (3)
  1. HUMIRA [Suspect]
     Indication: PSORIATIC ARTHROPATHY
     Route: 058
     Dates: start: 20070301, end: 20070901
  2. METHOTREXATE [Concomitant]
     Indication: PSORIATIC ARTHROPATHY
     Dates: start: 20070101, end: 20070101
  3. PLAQUENIL [Concomitant]
     Indication: PSORIATIC ARTHROPATHY
     Dates: start: 20090403

REACTIONS (4)
  - ARTHRALGIA [None]
  - HEPATIC ENZYME INCREASED [None]
  - HYPOTHYROIDISM [None]
  - PRURITUS [None]
